FAERS Safety Report 17544768 (Version 2)
Quarter: 2020Q1

REPORT INFORMATION
  Report Type: Spontaneous
  Country: ES (occurrence: ES)
  Receive Date: 20200316
  Receipt Date: 20200319
  Transmission Date: 20200409
  Serious: Yes (Hospitalization, Other)
  Sender: FDA-Public Use
  Company Number: ES-ACCORD-175757

PATIENT
  Age: 74 Year
  Sex: Female

DRUGS (6)
  1. HIBOR [Concomitant]
  2. ATENOLOL/ATENOLOL HYDROCHLORIDE [Concomitant]
     Active Substance: ATENOLOL HYDROCHLORIDE
  3. SERTRALINE [Concomitant]
     Active Substance: SERTRALINE HYDROCHLORIDE
  4. CISPLATIN. [Suspect]
     Active Substance: CISPLATIN
     Indication: MESOTHELIOMA
     Dosage: 75 MG/M2
     Route: 033
     Dates: start: 20181212
  5. FOLIC ACID. [Concomitant]
     Active Substance: FOLIC ACID
  6. SIMVASTATIN. [Concomitant]
     Active Substance: SIMVASTATIN

REACTIONS (2)
  - Off label use [Unknown]
  - Renal tubular necrosis [Recovered/Resolved with Sequelae]

NARRATIVE: CASE EVENT DATE: 20181212
